FAERS Safety Report 6506175-2 (Version None)
Quarter: 2009Q4

REPORT INFORMATION
  Report Type: 
  Country: None (occurrence: None)
  Receive Date: 20091218
  Receipt Date: 20091211
  Transmission Date: 20100525
  Serious: Yes (Hospitalization)
  Sender: FDA-Public Use
  Company Number: US-ELI_LILLY_AND_COMPANY-US200912003011

PATIENT
  Sex: Female

DRUGS (11)
  1. BYETTA [Suspect]
     Indication: TYPE 2 DIABETES MELLITUS
     Dosage: 10 UG, 2/D
     Route: 058
     Dates: end: 20090501
  2. BYETTA [Suspect]
     Dosage: 5 UG, DAILY (1/D)
     Route: 058
     Dates: start: 20090501, end: 20090101
  3. BYETTA [Suspect]
     Dosage: 10 UG, 2/D
     Route: 058
     Dates: start: 20090101
  4. LANTUS [Concomitant]
     Indication: TYPE 2 DIABETES MELLITUS
     Dosage: UNK, UNKNOWN
  5. LANTUS [Concomitant]
     Dosage: 14 U, DAILY (1/D)
  6. LANTUS [Concomitant]
     Dosage: 3 U, DAILY (1/D)
     Dates: end: 20090101
  7. NOVOLOG [Concomitant]
     Indication: TYPE 2 DIABETES MELLITUS
     Dosage: UNK, UNKNOWN
  8. NOVOLOG [Concomitant]
     Dosage: 140 U, DAILY (1/D)
     Dates: end: 20090101
  9. NOVOLOG [Concomitant]
     Dosage: UNK, UNKNOWN
     Dates: start: 20090101
  10. AMLODIPINE [Concomitant]
     Dosage: UNK, UNKNOWN
     Dates: start: 20060101
  11. ARICEPT [Concomitant]
     Indication: DEMENTIA ALZHEIMER'S TYPE
     Dosage: UNK, UNKNOWN

REACTIONS (7)
  - ATRIAL FIBRILLATION [None]
  - BLOOD GLUCOSE DECREASED [None]
  - BLOOD GLUCOSE INCREASED [None]
  - CONFUSIONAL STATE [None]
  - GENERAL PHYSICAL HEALTH DETERIORATION [None]
  - INCORRECT DOSE ADMINISTERED [None]
  - OFF LABEL USE [None]
